FAERS Safety Report 14628412 (Version 1)
Quarter: 2018Q1

REPORT INFORMATION
  Report Type: Spontaneous
  Country: GB (occurrence: GB)
  Receive Date: 20180312
  Receipt Date: 20180312
  Transmission Date: 20180509
  Serious: Yes (Disabling, Other)
  Sender: FDA-Public Use
  Company Number: GB-TEVA-2018-GB-868010

PATIENT
  Sex: Female
  Weight: 76.2 kg

DRUGS (2)
  1. INHALERS [Concomitant]
     Active Substance: UNSPECIFIED INGREDIENT
     Indication: ASTHMA
     Dosage: MILD ASTHMA - PREVENTER (DAILY) AND RELIEVER.
     Route: 055
  2. OLANZAPINE. [Suspect]
     Active Substance: OLANZAPINE
     Indication: PSYCHOTIC DISORDER
     Dosage: 5-10MCG
     Route: 048

REACTIONS (4)
  - Plantar fasciitis [Not Recovered/Not Resolved]
  - Tendon pain [Unknown]
  - Ligament pain [Unknown]
  - Musculoskeletal stiffness [Unknown]
